FAERS Safety Report 10022242 (Version 1)
Quarter: 2014Q1

REPORT INFORMATION
  Report Type: Spontaneous
  Country: NL (occurrence: NL)
  Receive Date: 20140319
  Receipt Date: 20140319
  Transmission Date: 20141002
  Serious: Yes (Other)
  Sender: FDA-Public Use
  Company Number: NL-WATSON-2014-04856

PATIENT
  Age: 9 Year
  Sex: Male
  Weight: 28 kg

DRUGS (2)
  1. RISPERIDON [Suspect]
     Indication: AUTISM
     Dosage: 0.5 MG, DAILY -1 KEER PER DAG 0.5 STUK(S), EXTRA INFO: 0,5 ML 1X PER DAG (1 TIME PER DAY 0.5 UNI
     Route: 048
     Dates: start: 20140212, end: 20140227
  2. METHYLFENIDAAT HCL [Concomitant]
     Indication: PRODUCT USED FOR UNKNOWN INDICATION
     Dosage: 5 MG, BID - 2 KEER PER DAG 1 STUK(S) (2 TIMES DAILY 1 PIECE ( S ))
     Route: 048
     Dates: start: 20131012

REACTIONS (4)
  - Aggression [Recovered/Resolved]
  - Restlessness [Recovered/Resolved]
  - Abnormal behaviour [Recovered/Resolved]
  - Therapeutic response unexpected with drug substitution [Recovered/Resolved]
